FAERS Safety Report 6278007-1 (Version None)
Quarter: 2009Q3

REPORT INFORMATION
  Report Type: 
  Country: None (occurrence: None)
  Receive Date: 20090722
  Receipt Date: 20090709
  Transmission Date: 20100115
  Serious: Yes (Other)
  Sender: FDA-Public Use
  Company Number: PHHY2009GB23757

PATIENT
  Sex: Male

DRUGS (7)
  1. CLOZARIL [Suspect]
     Indication: SCHIZOPHRENIA
     Dosage: UNK
     Dates: start: 20070910
  2. AMISULPRIDE [Concomitant]
  3. HYOSCINE HBR HYT [Concomitant]
  4. BISOPROLOL [Concomitant]
  5. METFORMIN HCL [Concomitant]
  6. LANSOPRAZOLE [Concomitant]
  7. CIPROFIBRATE [Concomitant]

REACTIONS (5)
  - CHEST DISCOMFORT [None]
  - INFLUENZA LIKE ILLNESS [None]
  - MALAISE [None]
  - NASOPHARYNGITIS [None]
  - OROPHARYNGEAL PAIN [None]
